FAERS Safety Report 10740213 (Version 2)
Quarter: 2015Q1

REPORT INFORMATION
  Report Type: Spontaneous
  Country: US (occurrence: US)
  Receive Date: 20150127
  Receipt Date: 20150227
  Transmission Date: 20150721
  Serious: Yes (Hospitalization, Other)
  Sender: FDA-Public Use
  Company Number: US-ACCORD-028233

PATIENT
  Age: 74 Year
  Sex: Male

DRUGS (4)
  1. TAMSULOSIN SANDOZ [Suspect]
     Active Substance: TAMSULOSIN
     Indication: DYSURIA
     Dosage: STRENGTH: 0.4 MG
     Route: 048
     Dates: end: 20150112
  2. SOTALOL. [Suspect]
     Active Substance: SOTALOL
     Indication: PRODUCT USED FOR UNKNOWN INDICATION
     Dosage: MANUFACTURED BY BAYER AND TEVA.
     Route: 048
  3. ELIQUIS [Suspect]
     Active Substance: APIXABAN
     Indication: PROPHYLAXIS
  4. FINASTERIDE ACCORD [Suspect]
     Active Substance: FINASTERIDE
     Indication: DYSURIA
     Route: 048

REACTIONS (6)
  - Arthralgia [Not Recovered/Not Resolved]
  - Fatigue [Not Recovered/Not Resolved]
  - Myalgia [Unknown]
  - Atrial fibrillation [Recovering/Resolving]
  - Sperm concentration zero [Unknown]
  - Arthritis [Unknown]

NARRATIVE: CASE EVENT DATE: 20131011
